FAERS Safety Report 7303494-7 (Version None)
Quarter: 2011Q1

REPORT INFORMATION
  Report Type: 
  Country: None (occurrence: None)
  Receive Date: 20110221
  Receipt Date: 20110208
  Transmission Date: 20110831
  Serious: Yes (Hospitalization)
  Sender: FDA-Public Use
  Company Number: PHHO2011SE01499

PATIENT
  Sex: Female
  Weight: 77 kg

DRUGS (6)
  1. CERTICAN [Suspect]
     Indication: HEART TRANSPLANT
     Dosage: 0.75 MG, BID
     Route: 048
     Dates: start: 20100408
  2. CELLCEPT [Concomitant]
  3. THYMOGLOBULIN [Concomitant]
  4. PREDNISOLONE [Concomitant]
  5. CYCLOSPORINE [Suspect]
     Dosage: 150 MG
     Dates: start: 20100908
  6. SOLU-MEDROL [Concomitant]

REACTIONS (7)
  - PNEUMONIA [None]
  - RENAL FAILURE [None]
  - THORACIC CAVITY DRAINAGE [None]
  - PLEURAL EFFUSION [None]
  - SYSTEMIC INFLAMMATORY RESPONSE SYNDROME [None]
  - HAEMORRHAGE [None]
  - CARDIAC OPERATION [None]
